FAERS Safety Report 16740089 (Version 1)
Quarter: 2019Q3

REPORT INFORMATION
  Report Type: Spontaneous
  Country: US (occurrence: US)
  Receive Date: 20190826
  Receipt Date: 20190826
  Transmission Date: 20191005
  Serious: Yes (Death)
  Sender: FDA-Public Use
  Company Number: PHEH2019US034988

PATIENT
  Sex: Male
  Weight: 74.83 kg

DRUGS (1)
  1. KYMRIAH [Suspect]
     Active Substance: TISAGENLECLEUCEL
     Indication: ACUTE LYMPHOCYTIC LEUKAEMIA RECURRENT
     Dosage: 13 ML, ONCE/SINGLE
     Route: 042
     Dates: start: 20190115, end: 20190115

REACTIONS (1)
  - Acute lymphocytic leukaemia recurrent [Fatal]
